FAERS Safety Report 9883589 (Version 1)
Quarter: 2014Q1

REPORT INFORMATION
  Report Type: Spontaneous
  Country: US (occurrence: US)
  Receive Date: 20140210
  Receipt Date: 20140210
  Transmission Date: 20141002
  Serious: Yes (Hospitalization, Other)
  Sender: FDA-Public Use
  Company Number: US-AMGEN-USASP2014008300

PATIENT
  Age: 71 Year
  Sex: Female

DRUGS (1)
  1. ENBREL [Suspect]
     Indication: RHEUMATOID ARTHRITIS
     Dosage: 50 MG, QWK
     Route: 065
     Dates: start: 20030101

REACTIONS (6)
  - Intracranial aneurysm [Recovered/Resolved]
  - Gait disturbance [Recovered/Resolved]
  - Knee operation [Recovered/Resolved]
  - Post procedural contusion [Recovered/Resolved]
  - Amnesia [Not Recovered/Not Resolved]
  - Injection site pain [Recovered/Resolved]
